FAERS Safety Report 5748586-9 (Version None)
Quarter: 2008Q2

REPORT INFORMATION
  Report Type: 
  Country: None (occurrence: None)
  Receive Date: 20080521
  Receipt Date: 20080516
  Transmission Date: 20081010
  Serious: Yes (Hospitalization)
  Sender: FDA-Public Use
  Company Number: 2008AL003623

PATIENT
  Age: 71 Year
  Sex: Female
  Weight: 45.3597 kg

DRUGS (3)
  1. DIGOXIN [Suspect]
     Indication: CARDIAC DISORDER
     Dosage: 0.25 MG DAILY PO
     Route: 048
  2. TOPROL-XL [Concomitant]
  3. COUMADIN [Concomitant]

REACTIONS (2)
  - DYSPNOEA [None]
  - GAIT DISTURBANCE [None]
